FAERS Safety Report 6317123-2 (Version None)
Quarter: 2009Q3

REPORT INFORMATION
  Report Type: 
  Country: None (occurrence: None)
  Receive Date: 20090819
  Receipt Date: 20090810
  Transmission Date: 20100115
  Serious: Yes (Hospitalization)
  Sender: FDA-Public Use
  Company Number: PD108

PATIENT
  Age: 56 Year
  Sex: Female

DRUGS (1)
  1. LEVETIRACETAM [Suspect]
     Indication: BODY DYSMORPHIC DISORDER
     Dosage: 250-3,000MG/DAY

REACTIONS (3)
  - DEPRESSION [None]
  - STRESS [None]
  - SUICIDAL IDEATION [None]
